FAERS Safety Report 25233057 (Version 1)
Quarter: 2025Q2

REPORT INFORMATION
  Report Type: Spontaneous
  Country: ES (occurrence: ES)
  Receive Date: 20250424
  Receipt Date: 20250424
  Transmission Date: 20250717
  Serious: Yes (Hospitalization)
  Sender: TEVA
  Company Number: None

PATIENT
  Age: 76 Year
  Sex: Female

DRUGS (13)
  1. CINACALCET [Suspect]
     Active Substance: CINACALCET
     Indication: Hypercalcaemia
     Route: 048
     Dates: start: 20240111, end: 20240122
  2. CALCIFEDIOL [Concomitant]
     Active Substance: CALCIFEDIOL
     Indication: Vitamin D deficiency
     Dosage: 10 CAPSULES (PVC/PVDC-ALUMINUM BLISTER)
     Route: 048
     Dates: start: 20170520
  3. ALLOPURINOL [Concomitant]
     Active Substance: ALLOPURINOL
     Indication: Hyperparathyroidism secondary
     Route: 048
     Dates: start: 20170520
  4. ATORVASTATIN [Concomitant]
     Active Substance: ATORVASTATIN
     Indication: Hyperlipidaemia
     Route: 048
     Dates: start: 20170919
  5. TORSEMIDE [Concomitant]
     Active Substance: TORSEMIDE
     Indication: Essential hypertension
     Route: 048
     Dates: start: 20240112
  6. ASPIRIN [Concomitant]
     Active Substance: ASPIRIN
     Indication: Arteriosclerosis
     Route: 048
     Dates: start: 20201113
  7. OMEPRAZOL VIATRIS [Concomitant]
     Indication: Dyspepsia
     Route: 048
     Dates: start: 20190130
  8. ZEMPLAR [Concomitant]
     Active Substance: PARICALCITOL
     Indication: Hyperparathyroidism secondary
     Route: 048
     Dates: start: 20190513
  9. SODIO BICARBONATO [Concomitant]
     Indication: Acidosis
     Route: 048
     Dates: start: 20230726
  10. LEVOTHYROXINE SODIUM [Concomitant]
     Active Substance: LEVOTHYROXINE SODIUM
     Indication: Hypothyroidism
     Route: 048
     Dates: start: 20160113
  11. DIAZEPAM [Concomitant]
     Active Substance: DIAZEPAM
     Indication: Osteoarthritis
     Route: 048
     Dates: start: 20170116
  12. PARACETAMOL NORMON [Concomitant]
     Indication: Pain
     Route: 048
     Dates: start: 20211108
  13. FOLIC ACID [Concomitant]
     Active Substance: FOLIC ACID
     Indication: Nephropathy
     Route: 048
     Dates: start: 20160113

REACTIONS (1)
  - Vomiting [Recovered/Resolved]

NARRATIVE: CASE EVENT DATE: 20240117
